FAERS Safety Report 9433291 (Version 1)
Quarter: 2013Q3

REPORT INFORMATION
  Report Type: Spontaneous
  Country: US (occurrence: US)
  Receive Date: 20130731
  Receipt Date: 20130731
  Transmission Date: 20140515
  Serious: Yes (Death, Other)
  Sender: FDA-Public Use
  Company Number: US-WATSON-2013-13041

PATIENT
  Age: 38 Year
  Sex: Female

DRUGS (1)
  1. CHLOROQUINE (WATSON LABORATORIES) [Suspect]
     Indication: CUTANEOUS LUPUS ERYTHEMATOSUS
     Dosage: 500 MG, DAILY
     Route: 065

REACTIONS (5)
  - Cardiomyopathy [Fatal]
  - Renal failure acute [Fatal]
  - Cardiac failure congestive [Fatal]
  - Atrioventricular block [Fatal]
  - Myopathy [Not Recovered/Not Resolved]
